FAERS Safety Report 21195777 (Version 1)
Quarter: 2022Q3

REPORT INFORMATION
  Report Type: Spontaneous
  Country: US (occurrence: None)
  Receive Date: 20220810
  Receipt Date: 20220810
  Transmission Date: 20221027
  Serious: No
  Sender: FDA-Public Use
  Company Number: None

PATIENT
  Age: 71 Year
  Sex: Female
  Weight: 67.95 kg

DRUGS (4)
  1. LOSARTAN [Suspect]
     Active Substance: LOSARTAN
     Indication: Hypertension
     Dosage: OTHER QUANTITY : 1 TABLET(S);?FREQUENCY : TWICE A DAY;?
     Route: 048
  2. PRAVASTATIN [Suspect]
     Active Substance: PRAVASTATIN
     Indication: Blood cholesterol increased
     Dosage: OTHER QUANTITY : 1 TABLET(S);?FREQUENCY : DAILY;?
     Route: 048
  3. VITAMIN D [Concomitant]
     Active Substance: VITAMIN D NOS
  4. ASPIRIN [Concomitant]
     Active Substance: ASPIRIN

REACTIONS (14)
  - Vision blurred [None]
  - Headache [None]
  - Back pain [None]
  - Neck pain [None]
  - Peripheral swelling [None]
  - Dizziness [None]
  - Limb discomfort [None]
  - Hyperhidrosis [None]
  - Hot flush [None]
  - Back pain [None]
  - Chills [None]
  - Rhinorrhoea [None]
  - Nasopharyngitis [None]
  - Fatigue [None]

NARRATIVE: CASE EVENT DATE: 20220618
